FAERS Safety Report 8799005 (Version 1)
Quarter: 2012Q4

REPORT INFORMATION
  Report Type: Spontaneous
  Country: US (occurrence: None)
  Receive Date: 20120914
  Receipt Date: 20120914
  Transmission Date: 20130627
  Serious: Yes (Hospitalization)
  Sender: FDA-Public Use
  Company Number: 1411798

PATIENT
  Age: 20 Year
  Sex: Male

DRUGS (8)
  1. LIPOSYN [Suspect]
     Indication: DRUG TOXICITY
     Dosage: 1.5 ml/kg
  2. LIPOSYN [Suspect]
     Indication: DRUG TOXICITY
     Dosage: 0.25 ml/kg/min
  3. LORAZEPAM [Concomitant]
  4. SODIUM BICARBONATE [Concomitant]
  5. EPINEPHRINE [Concomitant]
  6. NOREPINEPHRINE [Concomitant]
  7. AMIODARONE [Concomitant]
  8. FOSPHENYTOIN [Concomitant]

REACTIONS (1)
  - Pancreatitis [None]
